FAERS Safety Report 10410040 (Version 2)
Quarter: 2014Q3

REPORT INFORMATION
  Report Type: Report from Study
  Country: AU (occurrence: AU)
  Receive Date: 20140826
  Receipt Date: 20140826
  Transmission Date: 20150326
  Serious: Yes (Hospitalization)
  Sender: FDA-Public Use
  Company Number: PHHY2014AU079933

PATIENT
  Sex: Male

DRUGS (2)
  1. CLOZARIL [Suspect]
     Active Substance: CLOZAPINE
     Indication: SCHIZOPHRENIA
     Dosage: 300 MG, UNK
     Route: 048
     Dates: start: 20001020, end: 20140819
  2. CLOZARIL [Suspect]
     Active Substance: CLOZAPINE
     Dosage: 100, UNK
     Route: 048
     Dates: start: 20001020, end: 20140819

REACTIONS (1)
  - Renal failure chronic [Unknown]
